FAERS Safety Report 13485769 (Version 1)
Quarter: 2017Q2

REPORT INFORMATION
  Report Type: Spontaneous
  Country: US (occurrence: US)
  Receive Date: 20170426
  Receipt Date: 20170426
  Transmission Date: 20170830
  Serious: Yes (Other)
  Sender: FDA-Public Use
  Company Number: US-PFIZER INC-2017177712

PATIENT
  Age: 64 Year
  Sex: Female

DRUGS (4)
  1. XANAX [Suspect]
     Active Substance: ALPRAZOLAM
     Dosage: 4 MG, DAILY
  2. XANAX XR [Suspect]
     Active Substance: ALPRAZOLAM
     Dosage: 4 MG, DAILY
  3. XANAX [Suspect]
     Active Substance: ALPRAZOLAM
     Dosage: UNK
  4. XANAX XR [Suspect]
     Active Substance: ALPRAZOLAM
     Dosage: UNK

REACTIONS (4)
  - Bipolar II disorder [Unknown]
  - Feeling abnormal [Unknown]
  - Nausea [Unknown]
  - Amnesia [Unknown]
